FAERS Safety Report 10574043 (Version 4)
Quarter: 2015Q1

REPORT INFORMATION
  Report Type: Spontaneous
  Country: US (occurrence: US)
  Receive Date: 20141110
  Receipt Date: 20150116
  Transmission Date: 20150720
  Serious: Yes (Life-Threatening, Hospitalization, Other)
  Sender: FDA-Public Use
  Company Number: US-ELI_LILLY_AND_COMPANY-US201411002404

PATIENT
  Age: 69 Year
  Sex: Male
  Weight: 178.4 kg

DRUGS (5)
  1. KETOCONAZOL [Concomitant]
     Indication: RASH
  2. INSULIN HUMAN [Suspect]
     Active Substance: INSULIN HUMAN
     Indication: TYPE 2 DIABETES MELLITUS
     Dosage: UNK UNK, TID
     Route: 058
     Dates: start: 2010, end: 20140811
  3. INSULIN HUMAN [Suspect]
     Active Substance: INSULIN HUMAN
     Indication: INSULIN RESISTANCE
     Dosage: UNK, TID
     Route: 058
     Dates: start: 20141006
  4. INSULIN HUMAN [Suspect]
     Active Substance: INSULIN HUMAN
     Dosage: UNK, TID
     Route: 058
     Dates: start: 20141112
  5. LISINOPRIL. [Concomitant]
     Active Substance: LISINOPRIL
     Dosage: 5 MG, UNKNOWN

REACTIONS (2)
  - Angioedema [Recovering/Resolving]
  - Chronic kidney disease [Recovering/Resolving]
